FAERS Safety Report 24551868 (Version 1)
Quarter: 2024Q4

REPORT INFORMATION
  Report Type: Report from Study
  Country: US (occurrence: US)
  Receive Date: 20241026
  Receipt Date: 20241026
  Transmission Date: 20250115
  Serious: Yes (Other)
  Sender: ABBVIE
  Company Number: US-ABBVIE-5974825

PATIENT
  Sex: Male

DRUGS (1)
  1. HUMIRA [Suspect]
     Active Substance: ADALIMUMAB
     Indication: Product used for unknown indication
     Route: 058

REACTIONS (5)
  - Coronary artery occlusion [Not Recovered/Not Resolved]
  - Swelling face [Unknown]
  - Cardiac stress test abnormal [Unknown]
  - Osteomyelitis [Unknown]
  - Tooth disorder [Unknown]

NARRATIVE: CASE EVENT DATE: 20240101
